FAERS Safety Report 15053223 (Version 6)
Quarter: 2020Q3

REPORT INFORMATION
  Report Type: Report from Study
  Country: US (occurrence: US)
  Receive Date: 20180622
  Receipt Date: 20200810
  Transmission Date: 20201102
  Serious: Yes (Hospitalization, Other)
  Sender: FDA-Public Use
  Company Number: US-ACTELION-A-US2018-174101

PATIENT
  Age: 75 Year
  Sex: Female
  Weight: 70.75 kg

DRUGS (6)
  1. TADALAFIL. [Concomitant]
     Active Substance: TADALAFIL
  2. METOPROLOL. [Suspect]
     Active Substance: METOPROLOL
     Indication: PRODUCT USED FOR UNKNOWN INDICATION
     Route: 048
  3. AMLODIPINE [Concomitant]
     Active Substance: AMLODIPINE BESYLATE
  4. OPSUMIT [Suspect]
     Active Substance: MACITENTAN
     Indication: PULMONARY ARTERIAL HYPERTENSION
     Dosage: 10 MG, QD
     Route: 048
     Dates: start: 20170821
  5. EFFIENT [Concomitant]
     Active Substance: PRASUGREL HYDROCHLORIDE
  6. OXYGEN. [Concomitant]
     Active Substance: OXYGEN

REACTIONS (9)
  - Headache [Unknown]
  - Hypoacusis [Not Recovered/Not Resolved]
  - Contusion [Unknown]
  - Dehydration [Recovering/Resolving]
  - Stent placement [Unknown]
  - Fall [Unknown]
  - Syncope [Unknown]
  - Neck surgery [Not Recovered/Not Resolved]
  - Pain [Not Recovered/Not Resolved]

NARRATIVE: CASE EVENT DATE: 2020
